FAERS Safety Report 14845466 (Version 2)
Quarter: 2018Q3

REPORT INFORMATION
  Report Type: Spontaneous
  Country: US (occurrence: US)
  Receive Date: 20180504
  Receipt Date: 20180703
  Transmission Date: 20181010
  Serious: No
  Sender: FDA-Public Use
  Company Number: US-PFIZER INC-2018178844

PATIENT
  Age: 77 Year
  Sex: Female

DRUGS (8)
  1. AMLOPEN [Concomitant]
     Indication: BLOOD PRESSURE MEASUREMENT
     Dosage: UNK
     Dates: start: 20140105
  2. NORCO [Concomitant]
     Active Substance: ACETAMINOPHEN\HYDROCODONE BITARTRATE
     Dosage: UNK
     Dates: start: 20151104, end: 2015
  3. DEXAMETHASONE. [Concomitant]
     Active Substance: DEXAMETHASONE
     Dosage: UNK
     Dates: start: 20151104, end: 2015
  4. DOCETAXEL. [Suspect]
     Active Substance: DOCETAXEL
     Indication: BREAST CANCER
     Dosage: UNK UNK, CYCLIC (EVERY 3 WEEKS)(FOR 6 CYCLES)
     Dates: start: 20151013, end: 20160417
  5. TYLENOL [Concomitant]
     Active Substance: ACETAMINOPHEN
     Dosage: UNK
     Dates: start: 20060402
  6. LORAZEPAM. [Concomitant]
     Active Substance: LORAZEPAM
     Dosage: UNK
     Dates: start: 20151104, end: 2015
  7. TAXOTERE [Suspect]
     Active Substance: DOCETAXEL
     Indication: BREAST CANCER
     Dosage: UNK, CYCLIC (EVERY 3 WEEKS) (FOR 6 CYCLES)
     Dates: start: 20151013, end: 20160417
  8. ONDANSETRON [Concomitant]
     Active Substance: ONDANSETRON
     Dosage: UNK
     Dates: start: 20151104, end: 2015

REACTIONS (4)
  - Hair disorder [Unknown]
  - Hair texture abnormal [Unknown]
  - Hair colour changes [Unknown]
  - Alopecia [Unknown]

NARRATIVE: CASE EVENT DATE: 20151213
